FAERS Safety Report 8014921-4 (Version None)
Quarter: 2011Q4

REPORT INFORMATION
  Report Type: 
  Country: None (occurrence: None)
  Receive Date: 20111229
  Receipt Date: 20111220
  Transmission Date: 20120403
  Serious: Yes (Hospitalization)
  Sender: FDA-Public Use
  Company Number: ES-ROCHE-717195

PATIENT
  Sex: Male
  Weight: 56 kg

DRUGS (6)
  1. OMEPRAZOLE [Concomitant]
  2. PREDNISONE TAB [Concomitant]
  3. FOLIC ACID [Concomitant]
     Dosage: 5 CAPSULES
  4. INDOMETHACIN [Concomitant]
  5. ACTEMRA [Suspect]
     Indication: RHEUMATOID ARTHRITIS
     Dosage: FORM: IV INFUSION. LAST DOSE PRIOR TO SAE: 24 JUNE 2010. THERAPY PERMANENTLY DISCONTINUED.
     Route: 042
     Dates: start: 20091015, end: 20100717
  6. BLINDED METHOTREXATE [Suspect]
     Indication: RHEUMATOID ARTHRITIS
     Dosage: LAST DOSE PRIOR TO SAE: 13 JULY 2010. THERAPY: PERMANENTLY DISCONTINUED,
     Route: 048
     Dates: start: 20091015, end: 20100717

REACTIONS (3)
  - PULMONARY OEDEMA [None]
  - AORTIC STENOSIS [None]
  - ISCHAEMIC CARDIOMYOPATHY [None]
